FAERS Safety Report 5970154-4 (Version None)
Quarter: 2008Q4

REPORT INFORMATION
  Report Type: 
  Country: None (occurrence: None)
  Receive Date: 20081126
  Receipt Date: 20081120
  Transmission Date: 20090506
  Serious: Yes (Hospitalization, Other)
  Sender: FDA-Public Use
  Company Number: US-AMGEN-QUU317535

PATIENT
  Sex: Female

DRUGS (4)
  1. ENBREL [Suspect]
     Indication: RHEUMATOID ARTHRITIS
     Route: 058
     Dates: start: 20000101
  2. ASACOL [Concomitant]
     Dates: end: 20061025
  3. VITAMIN TAB [Concomitant]
  4. FOLIC ACID [Concomitant]

REACTIONS (13)
  - ABORTION MISSED [None]
  - CROHN'S DISEASE [None]
  - DYSPAREUNIA [None]
  - GASTROINTESTINAL OBSTRUCTION [None]
  - GENITAL HAEMORRHAGE [None]
  - NAUSEA [None]
  - OROPHARYNGEAL PAIN [None]
  - PYREXIA [None]
  - RETCHING [None]
  - RHEUMATOID ARTHRITIS [None]
  - SMEAR CERVIX ABNORMAL [None]
  - VOMITING [None]
  - VOMITING IN PREGNANCY [None]
